FAERS Safety Report 11194958 (Version 1)
Quarter: 2015Q2

REPORT INFORMATION
  Report Type: Spontaneous
  Country: US (occurrence: None)
  Receive Date: 20150615
  Receipt Date: 20150615
  Transmission Date: 20150821
  Serious: Yes (Hospitalization)
  Sender: FDA-Public Use
  Company Number: FK201502807

PATIENT
  Age: 93 Year
  Sex: Female

DRUGS (1)
  1. CEFTRIAXON (MANUFACTURER UNKNOWN) (CEFTRIAXON-DINATRIUM) (CEFTRIAXON-DINATRIUM) [Suspect]
     Active Substance: CEFTRIAXONE
     Indication: OSTEOMYELITIS BACTERIAL
     Dosage: 3 W

REACTIONS (11)
  - Somnolence [None]
  - Dermatitis [None]
  - Blood pressure diastolic decreased [None]
  - Body temperature increased [None]
  - Asthenia [None]
  - Heart rate increased [None]
  - Rash [None]
  - Erythema [None]
  - Rash pustular [None]
  - Acute generalised exanthematous pustulosis [None]
  - Skin exfoliation [None]
